FAERS Safety Report 4446070-6 (Version None)
Quarter: 2004Q3

REPORT INFORMATION
  Report Type: 
  Country: None (occurrence: None)
  Receive Date: 20040910
  Receipt Date: 20040609
  Transmission Date: 20050211
  Serious: Yes (Hospitalization)
  Sender: FDA-Public Use
  Company Number: FR-AMGEN-UK079529

PATIENT
  Age: 50 Year
  Sex: Female

DRUGS (8)
  1. NEULASTA [Suspect]
     Indication: CHEMOTHERAPY
  2. FLUOROURACIL [Concomitant]
  3. ENDOXAN [Concomitant]
  4. FARMORUBICIN [Concomitant]
     Dates: start: 20040225, end: 20040504
  5. KYTRIL [Concomitant]
  6. METHYLPREDNISOLONE [Concomitant]
  7. PRIMPERAN INJ [Concomitant]
  8. CORTICOSTEROID NOS [Concomitant]

REACTIONS (4)
  - ANAEMIA [None]
  - CYTOLYTIC HEPATITIS [None]
  - INFECTION [None]
  - PYREXIA [None]
